FAERS Safety Report 11294655 (Version 1)
Quarter: 2015Q3

REPORT INFORMATION
  Report Type: Spontaneous
  Country: IL (occurrence: None)
  Receive Date: 20150722
  Receipt Date: 20150722
  Transmission Date: 20151125
  Serious: Yes (Hospitalization)
  Sender: FDA-Public Use
  Company Number: None

PATIENT
  Sex: Male
  Weight: 97 kg

DRUGS (5)
  1. VIEKIRA PAK [Suspect]
     Active Substance: DASABUVIR\OMBITASVIR\PARITAPREVIR\RITONAVIR
     Indication: CHRONIC HEPATITIS C
     Dosage: 1 PILL
     Dates: start: 20150412
  2. EXVIERA [Suspect]
     Active Substance: DASABUVIR
     Indication: CHRONIC HEPATITIS C
     Dosage: 2 PILLS
     Dates: start: 20150412
  3. RAPASSAL [Concomitant]
  4. BACLOSAL [Concomitant]
  5. IMURANE [Concomitant]

REACTIONS (3)
  - Asthenia [None]
  - Chest pain [None]
  - Urinary tract infection [None]

NARRATIVE: CASE EVENT DATE: 20150705
